FAERS Safety Report 4737943-5 (Version None)
Quarter: 2005Q3

REPORT INFORMATION
  Report Type: 
  Country: None (occurrence: None)
  Receive Date: 20050803
  Receipt Date: 20050725
  Transmission Date: 20060218
  Serious: Yes (Life-Threatening, Hospitalization)
  Sender: FDA-Public Use
  Company Number: 2005-05-2049

PATIENT
  Age: 71 Year
  Sex: Female
  Weight: 52 kg

DRUGS (8)
  1. TEMODAL [Suspect]
     Dosage: SEE IMAGE
     Route: 048
     Dates: start: 20050208, end: 20050322
  2. BACTRIM DS [Suspect]
     Dosage: 3 QW ORAL
     Route: 048
     Dates: start: 20050208, end: 20050322
  3. RADIATION THERAPY [Concomitant]
  4. NEURONTIN [Concomitant]
  5. KYTRIL [Concomitant]
  6. SOLU-MEDROL [Concomitant]
  7. SERMION [Concomitant]
  8. LANZOR [Concomitant]

REACTIONS (3)
  - BONE MARROW DEPRESSION [None]
  - INCORRECT DOSE ADMINISTERED [None]
  - PANCYTOPENIA [None]
